FAERS Safety Report 5074140-0 (Version None)
Quarter: 2006Q3

REPORT INFORMATION
  Report Type: 
  Country: None (occurrence: None)
  Receive Date: 20060803
  Receipt Date: 20060724
  Transmission Date: 20061208
  Serious: Yes (Other)
  Sender: FDA-Public Use
  Company Number: 2006062292

PATIENT
  Age: 75 Year
  Sex: Female

DRUGS (2)
  1. AMLODIPINE [Suspect]
     Indication: HYPERTENSION
     Dosage: 5 MG
  2. PLAVIX [Concomitant]

REACTIONS (2)
  - MACULAR DEGENERATION [None]
  - TREATMENT NONCOMPLIANCE [None]
